FAERS Safety Report 5816068-1 (Version None)
Quarter: 2008Q3

REPORT INFORMATION
  Report Type: 
  Country: None (occurrence: None)
  Receive Date: 20080716
  Receipt Date: 20080716
  Transmission Date: 20090109
  Serious: Yes (Other)
  Sender: FDA-Public Use
  Company Number: None

PATIENT
  Age: 31 Year
  Sex: Female
  Weight: 45.3597 kg

DRUGS (1)
  1. SOLODYN [Suspect]
     Indication: ACNE
     Dosage: 45MG/ 1 TAB DAILY PO
     Route: 048
     Dates: start: 20080701, end: 20080714

REACTIONS (2)
  - LYMPHADENOPATHY [None]
  - PRURITUS GENERALISED [None]
